FAERS Safety Report 20712575 (Version 2)
Quarter: 2022Q2

REPORT INFORMATION
  Report Type: Spontaneous
  Country: NL (occurrence: NL)
  Receive Date: 20220415
  Receipt Date: 20220423
  Transmission Date: 20220721
  Serious: Yes (Other)
  Sender: FDA-Public Use
  Company Number: None

PATIENT
  Age: 6 Year
  Sex: Female
  Weight: 20 kg

DRUGS (1)
  1. FLUTICASONE PROPIONATE [Suspect]
     Active Substance: FLUTICASONE PROPIONATE
     Indication: Tonsillar hypertrophy
     Dosage: 1 TIME A DAY 2 SPRAYS IN EACH NOSTRIL, FLUTICASON PROPIONATE NOSE SPRAY 50UG/DO / BRAND NAME NOT SPE
     Dates: start: 202202, end: 20220311

REACTIONS (4)
  - Blindness [Unknown]
  - Hypopnoea [Unknown]
  - Muscle spasms [Unknown]
  - Respiratory rate increased [Unknown]

NARRATIVE: CASE EVENT DATE: 20220311
